FAERS Safety Report 10614672 (Version 1)
Quarter: 2014Q4

REPORT INFORMATION
  Report Type: Spontaneous
  Country: US (occurrence: US)
  Receive Date: 20141130
  Receipt Date: 20141130
  Transmission Date: 20150529
  Serious: Yes (Hospitalization)
  Sender: FDA-Public Use
  Company Number: US-BRISTOL-MYERS SQUIBB COMPANY-21645411

PATIENT
  Sex: Female

DRUGS (2)
  1. BYETTA [Suspect]
     Active Substance: EXENATIDE
  2. INSULIN [Concomitant]
     Active Substance: INSULIN NOS

REACTIONS (2)
  - Weight decreased [Unknown]
  - Spinal disorder [Unknown]

NARRATIVE: CASE EVENT DATE: 201409
